FAERS Safety Report 18746155 (Version 1)
Quarter: 2021Q1

REPORT INFORMATION
  Report Type: Spontaneous
  Country: US (occurrence: US)
  Receive Date: 20210115
  Receipt Date: 20210115
  Transmission Date: 20210419
  Serious: No
  Sender: FDA-Public Use
  Company Number: None

PATIENT
  Age: 56 Year
  Sex: Male
  Weight: 125.8 kg

DRUGS (1)
  1. BAMLANIVIMAB. [Suspect]
     Active Substance: BAMLANIVIMAB
     Indication: COVID-19
     Dosage: ?          OTHER FREQUENCY:INFUSE OVER 1 HR;?
     Route: 042
     Dates: start: 20210114, end: 20210114

REACTIONS (7)
  - Oral discomfort [None]
  - Paraesthesia oral [None]
  - Dental discomfort [None]
  - Infusion related reaction [None]
  - Pain [None]
  - Dental paraesthesia [None]
  - Hypersensitivity [None]

NARRATIVE: CASE EVENT DATE: 20210114
